FAERS Safety Report 5091875-4 (Version None)
Quarter: 2006Q3

REPORT INFORMATION
  Report Type: 
  Country: None (occurrence: None)
  Receive Date: 20060824
  Receipt Date: 20060816
  Transmission Date: 20061208
  Serious: Yes (Other)
  Sender: FDA-Public Use
  Company Number: 2006-DE-04276GD

PATIENT
  Sex: Female

DRUGS (4)
  1. PREDNISONE TAB [Suspect]
     Indication: ABORTION SPONTANEOUS
     Dosage: 20 MG, PO
     Route: 048
  2. ASPIRIN [Suspect]
     Indication: ABORTION SPONTANEOUS
     Dosage: 100 MG, PO
     Route: 048
  3. PROGESTERONE [Suspect]
     Indication: ABORTION SPONTANEOUS
     Dosage: 20 MG, PO
     Route: 048
  4. FOLATE (FOLATE SODIUM) [Suspect]
     Indication: ABORTION SPONTANEOUS
     Dosage: 5 MG (, EVERY SECOND DAY), PO
     Route: 048

REACTIONS (2)
  - DRUG EXPOSURE DURING PREGNANCY [None]
  - ECTOPIC PREGNANCY [None]
